FAERS Safety Report 19630521 (Version 1)
Quarter: 2021Q3

REPORT INFORMATION
  Report Type: Spontaneous
  Country: CN (occurrence: CN)
  Receive Date: 20210728
  Receipt Date: 20210728
  Transmission Date: 20211014
  Serious: Yes (Death, Other)
  Sender: FDA-Public Use
  Company Number: CN-ANIPHARMA-2021-CN-000208

PATIENT
  Age: 42 Year
  Sex: Male

DRUGS (5)
  1. CEFTRIAXONE. [Concomitant]
     Active Substance: CEFTRIAXONE
  2. VALPROIC ACID (NON?SPECIFIC) [Suspect]
     Active Substance: VALPROIC ACID
     Indication: EPILEPSY
     Dosage: 1.6 GRAM DAILY
  3. BIAPENEM [Concomitant]
     Active Substance: BIAPENEM
  4. LINEZOLID. [Concomitant]
     Active Substance: LINEZOLID
  5. VANCOMYCIN [Concomitant]
     Active Substance: VANCOMYCIN

REACTIONS (2)
  - Thrombotic microangiopathy [Fatal]
  - Acute hepatic failure [Fatal]
